FAERS Safety Report 12612421 (Version 1)
Quarter: 2016Q3

REPORT INFORMATION
  Report Type: Spontaneous
  Country: US (occurrence: US)
  Receive Date: 20160801
  Receipt Date: 20160801
  Transmission Date: 20161109
  Serious: No
  Sender: FDA-Public Use
  Company Number: US-BAYER-2016-148242

PATIENT
  Sex: Female

DRUGS (1)
  1. MAGNEVIST [Suspect]
     Active Substance: GADOPENTETATE DIMEGLUMINE
     Indication: NUCLEAR MAGNETIC RESONANCE IMAGING
     Dosage: 10 ML, ONCE
     Route: 042
     Dates: start: 20160518, end: 20160518

REACTIONS (4)
  - Sneezing [Unknown]
  - Urticaria [Unknown]
  - Eyelid oedema [Unknown]
  - Erythema [Unknown]

NARRATIVE: CASE EVENT DATE: 20160518
